FAERS Safety Report 14091155 (Version 1)
Quarter: 2017Q4

REPORT INFORMATION
  Report Type: Other
  Country: GB (occurrence: GB)
  Receive Date: 20171016
  Receipt Date: 20171016
  Transmission Date: 20180321
  Serious: Yes (Other)
  Sender: FDA-Public Use
  Company Number: GB-MACLEODS PHARMACEUTICALS US LTD-MAC2017006207

PATIENT

DRUGS (7)
  1. MEMANTINE. [Suspect]
     Active Substance: MEMANTINE
     Dosage: 10 MG, QD (INCREASING DOSE 5MG 1ST WEEK, 10MG 2ND WEEK, 15MG DAY)
     Route: 048
     Dates: start: 20170921, end: 20170927
  2. AMLODIPINE BESYLATE. [Concomitant]
     Active Substance: AMLODIPINE BESYLATE
     Indication: PRODUCT USED FOR UNKNOWN INDICATION
     Dosage: UNK
     Route: 065
  3. MEMANTINE. [Suspect]
     Active Substance: MEMANTINE
     Indication: DEMENTIA ALZHEIMER^S TYPE
     Dosage: 5 MG, QD (INCREASING DOSE 5MG 1ST WEEK, 10MG 2ND WEEK, 15MG DAY)
     Route: 048
     Dates: start: 20170914, end: 20170921
  4. MEMANTINE. [Suspect]
     Active Substance: MEMANTINE
     Dosage: 15 MG, QD (INCREASING DOSE 5MG 1ST WEEK, 10MG 2ND WEEK, 15MG DAY)
     Route: 048
     Dates: start: 20170927, end: 20170928
  5. FINASTERIDE. [Concomitant]
     Active Substance: FINASTERIDE
     Indication: BENIGN PROSTATIC HYPERPLASIA
     Dosage: UNK
     Route: 065
  6. TAMSULOSIN [Concomitant]
     Active Substance: TAMSULOSIN
     Indication: BENIGN PROSTATIC HYPERPLASIA
     Dosage: UNK
     Route: 065
  7. SERTRALINE HYDROCHLORIDE. [Concomitant]
     Active Substance: SERTRALINE HYDROCHLORIDE
     Indication: PRODUCT USED FOR UNKNOWN INDICATION
     Dosage: UNK
     Route: 065

REACTIONS (2)
  - Agitation [Unknown]
  - Suicidal ideation [Recovering/Resolving]

NARRATIVE: CASE EVENT DATE: 20170927
